FAERS Safety Report 9888685 (Version 1)
Quarter: 2014Q1

REPORT INFORMATION
  Report Type: Report from Study
  Country: US (occurrence: US)
  Receive Date: 20140211
  Receipt Date: 20140211
  Transmission Date: 20141002
  Serious: Yes (Hospitalization)
  Sender: FDA-Public Use
  Company Number: US-ACTELION-A-US2014-94647

PATIENT
  Age: 47 Year
  Sex: Female

DRUGS (4)
  1. VENTAVIS [Suspect]
     Indication: COR PULMONALE CHRONIC
     Dosage: UNK
     Route: 055
  2. TRACLEER [Concomitant]
     Indication: COR PULMONALE CHRONIC
     Dosage: UNK
     Route: 048
  3. SILDENAFIL [Concomitant]
  4. COUMADIN [Concomitant]

REACTIONS (1)
  - Intestinal mass [Unknown]
